FAERS Safety Report 17959416 (Version 2)
Quarter: 2020Q3

REPORT INFORMATION
  Report Type: Report from Study
  Country: US (occurrence: US)
  Receive Date: 20200629
  Receipt Date: 20200814
  Transmission Date: 20201103
  Serious: Yes (Other)
  Sender: FDA-Public Use
  Company Number: US-NOVOPROD-736079

PATIENT
  Age: 62 Year
  Sex: Male
  Weight: 174.63 kg

DRUGS (1)
  1. TRESIBA [Suspect]
     Active Substance: INSULIN DEGLUDEC
     Indication: DIABETES MELLITUS
     Dosage: 100 UNITS 20 MINUTES BEFORE HIS LAST MEAL
     Route: 058
     Dates: start: 201902

REACTIONS (3)
  - Product dose omission issue [Unknown]
  - Glycosylated haemoglobin increased [Unknown]
  - Hyperglycaemic unconsciousness [Recovering/Resolving]

NARRATIVE: CASE EVENT DATE: 20200607
